FAERS Safety Report 8916774 (Version 1)
Quarter: 2012Q4

REPORT INFORMATION
  Report Type: 
  Country: US (occurrence: US)
  Receive Date: 20121120
  Receipt Date: 20121120
  Transmission Date: 20130627
  Serious: Yes (Other)
  Sender: FDA-Public Use
  Company Number: US-TEVA-371213USA

PATIENT
  Sex: Male

DRUGS (1)
  1. DIAZEPAM [Suspect]

REACTIONS (4)
  - Throat tightness [Unknown]
  - Pharyngeal oedema [Unknown]
  - Swollen tongue [Unknown]
  - Paraesthesia oral [Unknown]
